APPROVED DRUG PRODUCT: PILOCARPINE HYDROCHLORIDE
Active Ingredient: PILOCARPINE HYDROCHLORIDE
Strength: 7.5MG
Dosage Form/Route: TABLET;ORAL
Application: A212377 | Product #002 | TE Code: AB
Applicant: AUROBINDO PHARMA USA INC
Approved: Aug 13, 2019 | RLD: No | RS: No | Type: RX